FAERS Safety Report 4530442-5 (Version None)
Quarter: 2004Q4

REPORT INFORMATION
  Report Type: 
  Country: None (occurrence: None)
  Receive Date: 20041216
  Receipt Date: 20041216
  Transmission Date: 20050328
  Serious: Yes (Life-Threatening, Hospitalization)
  Sender: FDA-Public Use
  Company Number: None

PATIENT
  Age: 66 Year
  Sex: Male
  Weight: 90.2658 kg

DRUGS (1)
  1. CELEBREX [Suspect]
     Indication: ARTHRITIS
     Dosage: ONE PER DAY   MAR 02- JAN 04    ORAL;  TWO PER DAY   JAN 04-FEB 04   ORAL
     Route: 048

REACTIONS (1)
  - MYOCARDIAL INFARCTION [None]
